FAERS Safety Report 7472903-5 (Version None)
Quarter: 2011Q2

REPORT INFORMATION
  Report Type: 
  Country: None (occurrence: None)
  Receive Date: 20110503
  Receipt Date: 20110411
  Transmission Date: 20111010
  Serious: Yes (Life-Threatening, Hospitalization)
  Sender: FDA-Public Use
  Company Number: INT_00021_2011

PATIENT
  Sex: Female
  Weight: 109.7705 kg

DRUGS (1)
  1. CEFTRIAXONE [Suspect]
     Indication: PNEUMONIA
     Dosage: (INTRAMUSCULAR)
     Route: 030
     Dates: start: 20101122

REACTIONS (3)
  - URTICARIA [None]
  - FALL [None]
  - HYPOTENSION [None]
